FAERS Safety Report 16255404 (Version 4)
Quarter: 2019Q2

REPORT INFORMATION
  Report Type: Report from Study
  Country: None (occurrence: NL)
  Receive Date: 20190430
  Receipt Date: 20190606
  Transmission Date: 20190711
  Serious: Yes (Hospitalization, Other)
  Sender: FDA-Public Use
  Company Number: NL-ABBVIE-19S-114-2741947-00

PATIENT
  Sex: Female

DRUGS (2)
  1. DUODOPA [Suspect]
     Active Substance: CARBIDOPA\LEVODOPA
     Indication: PARKINSON^S DISEASE
     Dosage: MD: 11.0, CD: 5.0, ED: 1.8, CND: 2.7?24 HOUR ADMINISTRATION
     Route: 050
     Dates: start: 20150323
  2. DUODOPA [Suspect]
     Active Substance: CARBIDOPA\LEVODOPA
     Dosage: MD: 11.0, CD: 5.1, CND: 2.8 ML/HR
     Route: 050

REACTIONS (12)
  - Cervical spinal stenosis [Unknown]
  - Intervertebral disc protrusion [Recovering/Resolving]
  - Hypoaesthesia [Unknown]
  - Thrombosis [Not Recovered/Not Resolved]
  - Gait inability [Not Recovered/Not Resolved]
  - Intentional product use issue [Unknown]
  - Stenosis [Not Recovered/Not Resolved]
  - Erythema [Not Recovered/Not Resolved]
  - Muscular weakness [Unknown]
  - Myelopathy [Unknown]
  - Erysipelas [Recovered/Resolved]
  - Peripheral swelling [Not Recovered/Not Resolved]
